FAERS Safety Report 6018187-6 (Version None)
Quarter: 2008Q4

REPORT INFORMATION
  Report Type: 
  Country: None (occurrence: None)
  Receive Date: 20081223
  Receipt Date: 20081215
  Transmission Date: 20090506
  Serious: Yes (Other)
  Sender: FDA-Public Use
  Company Number: PHHY2008GB27639

PATIENT
  Sex: Male

DRUGS (3)
  1. CLOZARIL [Suspect]
     Indication: SCHIZOPHRENIA
     Dosage: UNK
     Dates: start: 19910708
  2. CLOZARIL [Suspect]
     Dosage: 200 MG, BID
     Dates: start: 20081113
  3. CLOZARIL [Suspect]
     Dosage: 100 MG, BID
     Dates: start: 20081212

REACTIONS (3)
  - ASTHENIA [None]
  - FATIGUE [None]
  - LUNG NEOPLASM MALIGNANT [None]
